FAERS Safety Report 22167003 (Version 1)
Quarter: 2023Q1

REPORT INFORMATION
  Report Type: Spontaneous
  Country: US (occurrence: None)
  Receive Date: 20230331
  Receipt Date: 20230331
  Transmission Date: 20230418
  Serious: No
  Sender: FDA-Public Use
  Company Number: None

PATIENT
  Sex: Female

DRUGS (1)
  1. REMICADE [Suspect]
     Active Substance: INFLIXIMAB
     Dosage: OTHER FREQUENCY : EVERY8WEEKS;?
     Route: 042
     Dates: start: 202203

REACTIONS (2)
  - Drug ineffective [None]
  - Inappropriate schedule of product administration [None]
